FAERS Safety Report 14357722 (Version 4)
Quarter: 2019Q4

REPORT INFORMATION
  Report Type: Spontaneous
  Country: US (occurrence: US)
  Receive Date: 20180105
  Receipt Date: 20191017
  Transmission Date: 20200122
  Serious: No
  Sender: FDA-Public Use
  Company Number: US-PFIZER INC-2018003989

PATIENT
  Age: 74 Year
  Sex: Female

DRUGS (3)
  1. LETROZOLE. [Concomitant]
     Active Substance: LETROZOLE
     Dosage: 2.5 MG, UNK (TAKE 28 DAYS)
  2. IBRANCE [Suspect]
     Active Substance: PALBOCICLIB
     Dosage: 125 MG, CYCLIC (ONCE A DAYS FOR 21 DAYS)
     Dates: start: 20180115
  3. IBRANCE [Suspect]
     Active Substance: PALBOCICLIB
     Indication: BREAST CANCER
     Dosage: UNK

REACTIONS (3)
  - Product dose omission [Unknown]
  - Malaise [Unknown]
  - Gait disturbance [Unknown]

NARRATIVE: CASE EVENT DATE: 201601
